FAERS Safety Report 6431870-3 (Version None)
Quarter: 2009Q4

REPORT INFORMATION
  Report Type: 
  Country: None (occurrence: None)
  Receive Date: 20091109
  Receipt Date: 20091028
  Transmission Date: 20100525
  Serious: Yes (Hospitalization, Other)
  Sender: FDA-Public Use
  Company Number: IT-RANBAXY-2009US-28926

PATIENT

DRUGS (13)
  1. EFAVIRENZ [Suspect]
     Indication: HIV INFECTION
     Dosage: UNK, UNK
     Route: 065
  2. LAMIVUDINE [Suspect]
     Indication: HIV INFECTION
     Route: 065
  3. ZIDOVUDINE [Suspect]
     Indication: HIV INFECTION
     Route: 065
  4. LIPOSOMIAL  AMPHOTERICIN B (4MG/KG IV Q24H), [Suspect]
     Indication: DRUG USE FOR UNKNOWN INDICATION
     Dosage: 4 MG/KG, QD
     Route: 042
  5. FLUCYTOSINE (25 MG/KG PO Q6H) [Suspect]
     Indication: DRUG USE FOR UNKNOWN INDICATION
     Dosage: 25 MG/KG, QID
     Route: 048
  6. ACETAZOLAMIDE (2.5 MG/KG P.O Q12H) [Suspect]
     Indication: DRUG USE FOR UNKNOWN INDICATION
     Dosage: 2.5 MG/KG, BID
     Route: 048
  7. DEXAMETHASONE (0.15 MG/KG IV Q6H [Suspect]
     Indication: DRUG USE FOR UNKNOWN INDICATION
     Dosage: 0.15 MG/KG, QID
     Route: 042
  8. FLUCONAZOLE INTRAVENOUS [Suspect]
     Indication: CRYPTOCOCCOSIS
     Dosage: 800 MG, Q24H
     Route: 042
  9. FLUCONAZOLO RANBAXY 200 MG CAPSULE [Suspect]
     Indication: PROPHYLAXIS
     Dosage: 200 MG, QD
     Route: 048
  10. COTRIM [Suspect]
     Indication: PROPHYLAXIS
     Dosage: 1 TAB Q24H
  11. AZITHROMYCIN [Suspect]
     Indication: PROPHYLAXIS
     Dosage: 1200 MG, WEEKLY
     Route: 048
  12. DIDANOSINE [Suspect]
     Indication: HIV INFECTION
  13. ATAZANAVIR/RITONAVIR [Suspect]
     Indication: HIV INFECTION

REACTIONS (5)
  - CRYPTOCOCCOSIS [None]
  - HEADACHE [None]
  - IMMUNE RECONSTITUTION SYNDROME [None]
  - INTRACRANIAL PRESSURE INCREASED [None]
  - MENTAL STATUS CHANGES [None]
